FAERS Safety Report 10463794 (Version 1)
Quarter: 2014Q3

REPORT INFORMATION
  Report Type: Spontaneous
  Country: AU (occurrence: None)
  Receive Date: 20140918
  Receipt Date: 20140918
  Transmission Date: 20150326
  Serious: Yes (Disabling)
  Sender: FDA-Public Use
  Company Number: None

PATIENT
  Age: 24 Year
  Sex: Female
  Weight: 76 kg

DRUGS (1)
  1. MAXOLON [Suspect]
     Active Substance: METOCLOPRAMIDE HYDROCHLORIDE
     Indication: NAUSEA
     Dosage: 3 TIMES A DAY, TAKEN BY MOUTH
     Route: 048

REACTIONS (9)
  - Dyspnoea [None]
  - Anxiety [None]
  - Gaze palsy [None]
  - Insomnia [None]
  - Fear of death [None]
  - Vision blurred [None]
  - Irritability [None]
  - Trismus [None]
  - Muscle spasms [None]

NARRATIVE: CASE EVENT DATE: 20140906
